FAERS Safety Report 7672239-3 (Version None)
Quarter: 2011Q3

REPORT INFORMATION
  Report Type: 
  Country: None (occurrence: None)
  Receive Date: 20110809
  Receipt Date: 20110804
  Transmission Date: 20111222
  Serious: Yes (Death, Other)
  Sender: FDA-Public Use
  Company Number: PHHY2011DE70875

PATIENT
  Age: 24 Year
  Sex: Male

DRUGS (4)
  1. CYCLOSPORINE [Suspect]
     Indication: STEM CELL TRANSPLANT
  2. IRRADIATION [Concomitant]
     Indication: STEM CELL TRANSPLANT
  3. FLUDARABINE PHOSPHATE [Concomitant]
     Indication: STEM CELL TRANSPLANT
  4. CYCLOPHOSPHAMIDE [Concomitant]
     Indication: STEM CELL TRANSPLANT

REACTIONS (3)
  - CHRONIC GRAFT VERSUS HOST DISEASE [None]
  - INFECTION [None]
  - ACUTE GRAFT VERSUS HOST DISEASE [None]
